FAERS Safety Report 4333278-3 (Version None)
Quarter: 2004Q2

REPORT INFORMATION
  Report Type: 
  Country: None (occurrence: None)
  Receive Date: 20040406
  Receipt Date: 20040326
  Transmission Date: 20050107
  Serious: No
  Sender: FDA-Public Use
  Company Number: 7713

PATIENT
  Age: 79 Year
  Sex: Female

DRUGS (1)
  1. AMIODARONE [Suspect]
     Indication: ARRHYTHMIA
     Dosage: 200 MG
     Dates: start: 20031201, end: 20040217

REACTIONS (2)
  - CONDITION AGGRAVATED [None]
  - PULMONARY FIBROSIS [None]
